FAERS Safety Report 8902763 (Version 3)
Quarter: 2013Q1

REPORT INFORMATION
  Report Type: Spontaneous
  Country: US (occurrence: US)
  Receive Date: 20121112
  Receipt Date: 20130103
  Transmission Date: 20140127
  Serious: Yes (Death, Other)
  Sender: FDA-Public Use
  Company Number: US-RANBAXY-2012US-61932

PATIENT
  Age: 19 Month
  Sex: Male

DRUGS (8)
  1. FAMOTIDINE [Suspect]
     Indication: PRODUCT USED FOR UNKNOWN INDICATION
     Dosage: UNK
     Route: 065
  2. PANTOPRAZOLE [Suspect]
     Indication: PRODUCT USED FOR UNKNOWN INDICATION
     Dosage: UNK
     Route: 065
  3. SUCRALFATE [Suspect]
     Indication: PRODUCT USED FOR UNKNOWN INDICATION
     Dosage: UNK
     Route: 065
  4. POSACONAZOLE [Suspect]
     Indication: ZYGOMYCOSIS
     Dosage: 120 MG/KG
     Route: 048
  5. POSACONAZOLE [Suspect]
     Indication: PRODUCT USED FOR UNKNOWN INDICATION
     Dosage: 3000 MG
     Route: 048
  6. POSACONAZOLE [Suspect]
     Indication: PRODUCT USED FOR UNKNOWN INDICATION
     Dosage: 1500 MG
     Route: 048
  7. MICAFUNGIN [Concomitant]
     Indication: PRODUCT USED FOR UNKNOWN INDICATION
     Route: 065
  8. AMPHOTERICIN B [Concomitant]
     Indication: PRODUCT USED FOR UNKNOWN INDICATION

REACTIONS (10)
  - Drug interaction [Fatal]
  - Sepsis [Fatal]
  - Multi-organ failure [Fatal]
  - Hepatic congestion [Fatal]
  - Hepatic necrosis [Fatal]
  - Hepatic fibrosis [Fatal]
  - Acute respiratory distress syndrome [Fatal]
  - Cardiac failure congestive [Fatal]
  - Haemosiderosis [Fatal]
  - Off label use [Fatal]
